FAERS Safety Report 6390059-7 (Version None)
Quarter: 2009Q4

REPORT INFORMATION
  Report Type: 
  Country: None (occurrence: None)
  Receive Date: 20091006
  Receipt Date: 20090928
  Transmission Date: 20100525
  Serious: Yes (Hospitalization)
  Sender: FDA-Public Use
  Company Number: US-ABBOTT-09P-163-0598607-00

PATIENT
  Sex: Male
  Weight: 78.088 kg

DRUGS (6)
  1. TRILIPIX [Suspect]
     Indication: BLOOD TRIGLYCERIDES INCREASED
     Route: 048
     Dates: start: 20090918, end: 20090919
  2. NEXIUM [Concomitant]
     Indication: GASTROOESOPHAGEAL REFLUX DISEASE
     Route: 048
  3. LISINOPRIL [Concomitant]
     Indication: DRUG USE FOR UNKNOWN INDICATION
     Route: 050
  4. ATIVAN [Concomitant]
     Indication: INSOMNIA
     Route: 048
  5. AVANDAMET [Concomitant]
     Indication: TYPE 2 DIABETES MELLITUS
  6. FLOMAX [Concomitant]
     Indication: URINARY INCONTINENCE
     Route: 048

REACTIONS (9)
  - ABDOMINAL PAIN [None]
  - ASTHENIA [None]
  - DIARRHOEA [None]
  - FATIGUE [None]
  - HAEMATOCHEZIA [None]
  - HAEMOGLOBIN DECREASED [None]
  - HYPERHIDROSIS [None]
  - NAUSEA [None]
  - WHITE BLOOD CELL COUNT INCREASED [None]
